FAERS Safety Report 5507777-2 (Version None)
Quarter: 2007Q4

REPORT INFORMATION
  Report Type: 
  Country: None (occurrence: None)
  Receive Date: 20071102
  Receipt Date: 20070921
  Transmission Date: 20080405
  Serious: Yes (Hospitalization, Other)
  Sender: FDA-Public Use
  Company Number: 230092M07GBR

PATIENT
  Age: 48 Year
  Sex: Female
  Weight: 81 kg

DRUGS (5)
  1. REBIF [Suspect]
     Indication: MULTIPLE SCLEROSIS
     Dosage: 44 MCG, 3 IN 1 WEEKS, SUBCUTANEOUS
     Route: 058
  2. ASPIRIN [Concomitant]
  3. SIMVASTATIN [Concomitant]
  4. QVAR [Concomitant]
  5. VENTOLIN EVOHALER (SALBUTAMOL SULFATE) [Concomitant]

REACTIONS (2)
  - CEREBROVASCULAR ACCIDENT [None]
  - MULTIPLE SCLEROSIS RELAPSE [None]
